FAERS Safety Report 15967282 (Version 1)
Quarter: 2019Q1

REPORT INFORMATION
  Report Type: Spontaneous
  Country: US (occurrence: US)
  Receive Date: 20190215
  Receipt Date: 20190215
  Transmission Date: 20190418
  Serious: No
  Sender: FDA-Public Use
  Company Number: US-SA-2019SA039820

PATIENT

DRUGS (1)
  1. LEMTRADA [Suspect]
     Active Substance: ALEMTUZUMAB
     Route: 041

REACTIONS (7)
  - Abdominal discomfort [Unknown]
  - Abnormal sleep-related event [Unknown]
  - Feeling abnormal [Unknown]
  - Nausea [Unknown]
  - Dysgeusia [Unknown]
  - Fatigue [Unknown]
  - Headache [Unknown]
